FAERS Safety Report 8597999-9 (Version None)
Quarter: 2012Q3

REPORT INFORMATION
  Report Type: 
  Country: None (occurrence: None)
  Receive Date: 20120816
  Receipt Date: 20120806
  Transmission Date: 20120928
  Serious: No
  Sender: FDA-Public Use
  Company Number: US-B.I. PHARMACEUTICALS,INC./RIDGEFIELD-2012-BP-17648BP

PATIENT
  Age: 68 Year
  Sex: Female

DRUGS (9)
  1. IPRATROPIUM BROMIDE [Suspect]
     Indication: CHRONIC OBSTRUCTIVE PULMONARY DISEASE
     Dosage: 4 PUF
     Route: 055
     Dates: start: 20090101
  2. CALCIUM WITH VITAMIN D [Concomitant]
     Indication: SUPPLEMENTATION THERAPY
     Dosage: 500 MG
     Route: 048
  3. NOVOLIN N [Concomitant]
     Indication: DIABETES MELLITUS
     Dosage: 11 U
     Route: 058
  4. NOVOLIN R [Concomitant]
     Indication: DIABETES MELLITUS
     Dosage: 15 U
     Route: 058
  5. FLAX SEED [Concomitant]
     Indication: SUPPLEMENTATION THERAPY
     Route: 048
  6. CYCLOBENZAPRINE [Suspect]
     Indication: MUSCLE RELAXANT THERAPY
     Route: 048
     Dates: start: 20120601, end: 20120706
  7. ALLEGRA [Concomitant]
     Indication: SINUS DISORDER
     Route: 048
  8. ASPIRIN [Concomitant]
     Indication: PROPHYLAXIS
     Route: 048
  9. VITAMIN B-12 [Concomitant]
     Indication: SUPPLEMENTATION THERAPY
     Route: 048

REACTIONS (3)
  - THROAT TIGHTNESS [None]
  - GAIT DISTURBANCE [None]
  - BACK PAIN [None]
